FAERS Safety Report 9995958 (Version 1)
Quarter: 2014Q1

REPORT INFORMATION
  Report Type: Spontaneous
  Country: US (occurrence: None)
  Receive Date: 20140310
  Receipt Date: 20140310
  Transmission Date: 20141002
  Serious: Yes (Disabling)
  Sender: FDA-Public Use
  Company Number: None

PATIENT
  Age: 51 Year
  Sex: Female
  Weight: 65.77 kg

DRUGS (4)
  1. BUPROPION [Suspect]
     Indication: DEPRESSION
     Dosage: 1 PILLL ONCE DAILY TAKEN BY MOUTH
     Route: 048
     Dates: start: 20140213, end: 20140306
  2. BUPROPION [Suspect]
     Indication: DYSTHYMIC DISORDER
     Dosage: 1 PILLL ONCE DAILY TAKEN BY MOUTH
     Route: 048
     Dates: start: 20140213, end: 20140306
  3. BUPROPION [Suspect]
     Indication: ANGER
     Dosage: 1 PILLL ONCE DAILY TAKEN BY MOUTH
     Route: 048
     Dates: start: 20140213, end: 20140306
  4. BUPROPION [Suspect]
     Indication: SLEEP DISORDER
     Dosage: 1 PILLL ONCE DAILY TAKEN BY MOUTH
     Route: 048
     Dates: start: 20140213, end: 20140306

REACTIONS (6)
  - Depression [None]
  - Increased appetite [None]
  - Headache [None]
  - Disease recurrence [None]
  - Feeling abnormal [None]
  - Product substitution issue [None]
